FAERS Safety Report 5224423-6 (Version None)
Quarter: 2007Q1

REPORT INFORMATION
  Report Type: 
  Country: None (occurrence: None)
  Receive Date: 20070130
  Receipt Date: 20070122
  Transmission Date: 20070707
  Serious: Yes (Other)
  Sender: FDA-Public Use
  Company Number: CA-PFIZER INC-2006144592

PATIENT
  Sex: Female

DRUGS (2)
  1. FRAGMIN [Suspect]
     Indication: DEEP VEIN THROMBOSIS
     Route: 058
  2. COUMADIN [Suspect]
     Dates: start: 20060101, end: 20060101

REACTIONS (1)
  - PULMONARY EMBOLISM [None]
